FAERS Safety Report 8746781 (Version 2)
Quarter: 2012Q4

REPORT INFORMATION
  Report Type: 
  Country: DK (occurrence: DK)
  Receive Date: 20120827
  Receipt Date: 20121207
  Transmission Date: 20130627
  Serious: Yes (Death)
  Sender: FDA-Public Use
  Company Number: DK-B.I. PHARMACEUTICALS,INC./RIDGEFIELD-2012-SW-00640DB

PATIENT
  Age: 82 Year
  Sex: Male
  Weight: 75 kg

DRUGS (3)
  1. PRADAXA [Suspect]
     Indication: THROMBOSIS PROPHYLAXIS
     Dosage: 220 mg
     Route: 048
     Dates: start: 20120317, end: 201208
  2. SELOZOK [Concomitant]
     Dosage: 50 mg
  3. RAMIPRIL [Concomitant]
     Dosage: 2.5 mg

REACTIONS (4)
  - Skin haemorrhage [Fatal]
  - Gastrointestinal haemorrhage [Fatal]
  - Procedural haemorrhage [Fatal]
  - Peritoneal haemorrhage [Fatal]
